FAERS Safety Report 16835302 (Version 2)
Quarter: 2019Q3

REPORT INFORMATION
  Report Type: Spontaneous
  Country: US (occurrence: US)
  Receive Date: 20190920
  Receipt Date: 20190923
  Transmission Date: 20191005
  Serious: Yes (Death, Hospitalization)
  Sender: FDA-Public Use
  Company Number: US-CELGENEUS-USA-20190906661

PATIENT
  Age: 42 Year
  Sex: Male

DRUGS (1)
  1. POMALYST [Suspect]
     Active Substance: POMALIDOMIDE
     Indication: PLASMA CELL MYELOMA
     Dosage: 4 MILLIGRAM
     Route: 048
     Dates: start: 201907

REACTIONS (4)
  - Hypocalcaemia [Unknown]
  - Disease progression [Unknown]
  - Mental status changes [Unknown]
  - Death [Fatal]

NARRATIVE: CASE EVENT DATE: 20190909
